FAERS Safety Report 11876181 (Version 1)
Quarter: 2015Q4

REPORT INFORMATION
  Report Type: Spontaneous
  Country: CH (occurrence: CH)
  Receive Date: 20151229
  Receipt Date: 20151229
  Transmission Date: 20160305
  Serious: Yes (Other)
  Sender: FDA-Public Use
  Company Number: CH-TEVA-621007ISR

PATIENT
  Sex: Female

DRUGS (1)
  1. METHYLPREDNISOLONE. [Suspect]
     Active Substance: METHYLPREDNISOLONE
     Indication: DYSPNOEA
     Route: 065

REACTIONS (3)
  - Hypotension [Unknown]
  - Drug hypersensitivity [Unknown]
  - Hypersensitivity [Unknown]
